FAERS Safety Report 14124840 (Version 1)
Quarter: 2017Q4

REPORT INFORMATION
  Report Type: Spontaneous
  Country: US (occurrence: US)
  Receive Date: 20171025
  Receipt Date: 20171025
  Transmission Date: 20180321
  Serious: No
  Sender: FDA-Public Use
  Company Number: US-PERRIGO-17US026479

PATIENT
  Age: 35 Year
  Sex: Male
  Weight: 92.97 kg

DRUGS (2)
  1. NICOTINE POLACRILEX [Suspect]
     Active Substance: NICOTINE
     Indication: NICOTINE DEPENDENCE
     Dosage: 4 MG, EVERY 1.5 HOURS, 10 TIMES A DAY
     Route: 002
     Dates: start: 20170827, end: 20170830
  2. NICOTINE POLACRILEX [Suspect]
     Active Substance: NICOTINE
     Dosage: 8 MG, SINGLE
     Route: 002
     Dates: start: 201708, end: 201708

REACTIONS (2)
  - Wrong technique in product usage process [Recovered/Resolved]
  - Drug ineffective [Unknown]

NARRATIVE: CASE EVENT DATE: 201708
